FAERS Safety Report 8599007-2 (Version None)
Quarter: 2012Q3

REPORT INFORMATION
  Report Type: 
  Country: None (occurrence: None)
  Receive Date: 20120816
  Receipt Date: 20120808
  Transmission Date: 20120928
  Serious: Yes (Hospitalization, Other)
  Sender: FDA-Public Use
  Company Number: PHHY2012CH069074

PATIENT
  Age: 43 Year
  Sex: Female

DRUGS (4)
  1. VALPROIC ACID [Suspect]
     Indication: EPILEPSY
     Dosage: 500MG-300MG-500MG-300MG
     Route: 048
  2. LYRICA [Suspect]
     Indication: EPILEPSY
     Dosage: 50MG-50MG-100MG-100MG
     Route: 048
  3. LAMOTRIGINE [Suspect]
     Indication: EPILEPSY
     Dosage: 50MG-50MG-100MG
     Route: 048
  4. TORSEMIDE [Concomitant]
     Indication: OEDEMA
     Dosage: 1 DF, QD
     Route: 048

REACTIONS (6)
  - HYPOTENSION [None]
  - MIOSIS [None]
  - SOMNOLENCE [None]
  - DEPRESSED LEVEL OF CONSCIOUSNESS [None]
  - RENAL IMPAIRMENT [None]
  - HYPOTONIA [None]
